FAERS Safety Report 7756841-6 (Version None)
Quarter: 2011Q3

REPORT INFORMATION
  Report Type: 
  Country: None (occurrence: None)
  Receive Date: 20110916
  Receipt Date: 20110912
  Transmission Date: 20111222
  Serious: Yes (Disabling, Other)
  Sender: FDA-Public Use
  Company Number: US-ROCHE-802000

PATIENT
  Sex: Male
  Weight: 77.1 kg

DRUGS (1)
  1. AVASTIN [Suspect]
     Indication: MACULAR DEGENERATION
     Dosage: DOSE: 1.25 MG/0.05 ML FOR EVERY 4-6 WEEKS
     Route: 031
     Dates: start: 20110128, end: 20110325

REACTIONS (4)
  - ENDOPHTHALMITIS [None]
  - PRODUCT QUALITY ISSUE [None]
  - BLINDNESS [None]
  - EYEBALL AVULSION [None]
